FAERS Safety Report 8604263 (Version 3)
Quarter: 2013Q4

REPORT INFORMATION
  Report Type: Report from Study
  Country: US (occurrence: US)
  Receive Date: 20120608
  Receipt Date: 20131017
  Transmission Date: 20140711
  Serious: Yes (Hospitalization)
  Sender: FDA-Public Use
  Company Number: US-PFIZER INC-2012132851

PATIENT
  Age: 65 Year
  Sex: Female
  Weight: 81.7 kg

DRUGS (12)
  1. CISPLATIN [Suspect]
     Indication: HEAD AND NECK CANCER
     Dosage: 200 MG (FREQUENCY UNKNOWN)
     Route: 042
     Dates: start: 20120514
  2. 5-FLUOROURACIL [Suspect]
     Indication: HEAD AND NECK CANCER
     Dosage: 2000 MG, CYCLIC, PER DAY FOR FOUR DAYS
     Route: 042
     Dates: start: 20120514, end: 20120518
  3. 5-FLUOROURACIL BIOSYN [Suspect]
     Dosage: 500 MG/M2, CYCLIC, PER DAY EVERY 4 DAYS
     Route: 042
  4. CALCITROL [Concomitant]
     Indication: MINERAL SUPPLEMENTATION
     Dosage: UNK
     Dates: start: 20120330
  5. ATIVAN [Concomitant]
     Indication: NAUSEA
     Dosage: UNK
     Dates: start: 20120514
  6. ATIVAN [Concomitant]
     Indication: ANXIETY
  7. CALCIUM CARBONATE [Concomitant]
     Indication: SUPPLEMENTATION THERAPY
     Dosage: UNK
     Dates: start: 20120330
  8. CALCIUM CARBONATE [Concomitant]
     Indication: THYROID HORMONE REPLACEMENT THERAPY
  9. DEXAMETHASONE [Concomitant]
     Indication: VOMITING
     Dosage: UNK
     Dates: start: 20120514
  10. EMEND TRIFOLD [Concomitant]
     Indication: VOMITING
     Dosage: UNK
     Dates: start: 20120514
  11. PROCHLORPERAZINE [Concomitant]
     Indication: VOMITING
     Dosage: UNK
     Dates: start: 20120514
  12. SYNTHROID [Concomitant]
     Indication: THYROID HORMONE REPLACEMENT THERAPY
     Dosage: UNK
     Dates: start: 20120330

REACTIONS (3)
  - Dehydration [Recovered/Resolved]
  - Vomiting [Recovered/Resolved]
  - Syncope [Recovered/Resolved]
